FAERS Safety Report 8880799 (Version 1)
Quarter: 2012Q4

REPORT INFORMATION
  Report Type: 
  Country: PH (occurrence: PH)
  Receive Date: 20121101
  Receipt Date: 20121101
  Transmission Date: 20130627
  Serious: Yes (Death, Hospitalization)
  Sender: FDA-Public Use
  Company Number: PH-BAXTER-2012BAX021054

PATIENT
  Age: 60 Year
  Sex: Female

DRUGS (3)
  1. DIANEAL PD2 WITH 1.5% DEXTROSE [Suspect]
     Indication: CAPD
     Route: 033
     Dates: start: 20080704, end: 20120424
  2. DIANEAL PD2 WITH 4.25% DEXTROSE [Suspect]
     Indication: CAPD
     Route: 033
     Dates: start: 20080704, end: 20120424
  3. DIANEAL PD2 WITH 4.25% DEXTROSE [Suspect]
     Dates: start: 20080704, end: 20120424

REACTIONS (3)
  - Cardio-respiratory arrest [Fatal]
  - Hyperglycaemia [Unknown]
  - Hypotension [Not Recovered/Not Resolved]
